FAERS Safety Report 24670827 (Version 1)
Quarter: 2024Q4

REPORT INFORMATION
  Report Type: Spontaneous
  Country: US (occurrence: US)
  Receive Date: 20241127
  Receipt Date: 20241127
  Transmission Date: 20250114
  Serious: No
  Sender: INCYTE
  Company Number: US-INCYTE CORPORATION-2024IN012421

PATIENT

DRUGS (2)
  1. JAKAFI [Suspect]
     Active Substance: RUXOLITINIB
     Indication: Histiocytic sarcoma
     Dosage: 5 MILLIGRAM (TAKE 2 TABLETS IN THE MORNING AND 3 TABLETS IN THE EVENING)
     Route: 048
     Dates: start: 202212
  2. COTELLIC [Concomitant]
     Active Substance: COBIMETINIB
     Indication: Product used for unknown indication
     Dosage: 1 TIME A DAY (AT BEDTIME) FOR 21DAYS AND THEN STOP FOR 7 DAYS
     Route: 065

REACTIONS (3)
  - Haemorrhage [Unknown]
  - Contusion [Unknown]
  - Off label use [Unknown]

NARRATIVE: CASE EVENT DATE: 20221201
